FAERS Safety Report 4331439-0 (Version None)
Quarter: 2004Q1

REPORT INFORMATION
  Report Type: 
  Country: None (occurrence: None)
  Receive Date: 20040329
  Receipt Date: 20040315
  Transmission Date: 20041129
  Serious: No
  Sender: FDA-Public Use
  Company Number: 04P-163-0254106-00

PATIENT

DRUGS (3)
  1. BIAXIN [Suspect]
     Indication: MYCOBACTERIUM AVIUM COMPLEX INFECTION
     Dosage: 500 MG, 2 IN 1 D, PER ORAL
     Route: 048
  2. ETHAMBUTOL HCL [Suspect]
     Indication: MYCOBACTERIUM AVIUM COMPLEX INFECTION
     Dosage: 15 MG/KG, 1 IN 1 D, PER ORAL
     Route: 048
  3. RIFABUTIN [Suspect]
     Indication: MYCOBACTERIUM AVIUM COMPLEX INFECTION
     Dosage: 450 MG, 1 IN 1 D, PER ORAL
     Route: 048

REACTIONS (1)
  - UVEITIS [None]
